FAERS Safety Report 22373005 (Version 3)
Quarter: 2023Q4

REPORT INFORMATION
  Report Type: Report from Study
  Country: JP (occurrence: JP)
  Receive Date: 20230526
  Receipt Date: 20231218
  Transmission Date: 20240109
  Serious: Yes (Hospitalization)
  Sender: FDA-Public Use
  Company Number: JP-ABBVIE-5182053

PATIENT
  Age: 70 Year
  Sex: Female
  Weight: 52 kg

DRUGS (1)
  1. RINVOQ [Suspect]
     Active Substance: UPADACITINIB
     Indication: Rheumatoid arthritis
     Dosage: FORM STRENGTH ; 15 MILLIGRAM
     Route: 048
     Dates: start: 20210511, end: 20221104

REACTIONS (1)
  - Muscle abscess [Recovered/Resolved]

NARRATIVE: CASE EVENT DATE: 20221103
